FAERS Safety Report 9154306 (Version 1)
Quarter: 2013Q1

REPORT INFORMATION
  Report Type: Spontaneous
  Country: US (occurrence: None)
  Receive Date: 20130306
  Receipt Date: 20130306
  Transmission Date: 20140127
  Serious: Yes (Hospitalization)
  Sender: FDA-Public Use
  Company Number: None

PATIENT
  Age: 63 Year
  Sex: Female

DRUGS (7)
  1. REVLIMID [Suspect]
     Dosage: 15 MG QD X14/21D BY MOUTH
     Route: 048
     Dates: start: 201205
  2. DEXAMETHASONE [Concomitant]
  3. AMLODIPINE [Concomitant]
  4. LISINOPRIL/HCTZ [Concomitant]
  5. ASA [Concomitant]
  6. ALBUTEROL [Concomitant]
  7. BECLOMETHASONE INHALER [Concomitant]

REACTIONS (1)
  - Pneumonia [None]
